FAERS Safety Report 6176142-X (Version None)
Quarter: 2009Q2

REPORT INFORMATION
  Report Type: 
  Country: None (occurrence: None)
  Receive Date: 20090501
  Receipt Date: 20090422
  Transmission Date: 20091009
  Serious: Yes (Death)
  Sender: FDA-Public Use
  Company Number: US-ELI_LILLY_AND_COMPANY-US200904005011

PATIENT
  Age: 7 Year
  Sex: Male
  Weight: 30.385 kg

DRUGS (4)
  1. SYMBYAX [Suspect]
  2. ZYPREXA [Suspect]
  3. VYVANSE [Concomitant]
  4. LEXAPRO [Concomitant]

REACTIONS (1)
  - COMPLETED SUICIDE [None]
